FAERS Safety Report 8790837 (Version 1)
Quarter: 2012Q4

REPORT INFORMATION
  Report Type: Spontaneous
  Country: GB (occurrence: None)
  Receive Date: 20120907
  Receipt Date: 20120907
  Transmission Date: 20130627
  Serious: Yes (Life-Threatening)
  Sender: FDA-Public Use
  Company Number: GER/UKI/12/0025617

PATIENT
  Age: 73 Year
  Sex: Male
  Weight: 80 kg

DRUGS (1)
  1. ATORVASTATIN [Suspect]
     Indication: HYPERCHOLESTEROLAEMIA
     Dates: start: 2011

REACTIONS (9)
  - Arthralgia [None]
  - Myalgia [None]
  - Muscle fatigue [None]
  - COUGH [None]
  - Cough [None]
  - Oropharyngeal pain [None]
  - Muscular weakness [None]
  - Asthenia [None]
  - Malaise [None]
